FAERS Safety Report 8267810-4 (Version None)
Quarter: 2012Q2

REPORT INFORMATION
  Report Type: 
  Country: None (occurrence: None)
  Receive Date: 20120404
  Receipt Date: 20120326
  Transmission Date: 20120825
  Serious: Yes (Congenital Anomaly)
  Sender: FDA-Public Use
  Company Number: 213263

PATIENT
  Age: 1 Decade
  Sex: Female

DRUGS (7)
  1. INNOHEP [Suspect]
     Indication: FOETAL EXPOSURE DURING PREGNANCY
     Dosage: 10000 IU (10000 IU, 1 IN 1 D, TRANSPLACENTAL
     Route: 064
     Dates: start: 20000101, end: 20090515
  2. ASPEGIC (ACETYLSALICYLIC ACID) (250 MG, POWER FOR ORAL SUSPENSION) [Suspect]
     Indication: FOETAL EXPOSURE DURING PREGNANCY
     Dosage: 250 MG (250 MG, 1 IN 1 D) TRANSPLACENTAL
     Route: 064
     Dates: end: 20090501
  3. CALCIUM CARBONATE [Suspect]
     Indication: FOETAL EXPOSURE DURING PREGNANCY
     Dosage: 1 DF (1 IN 1 D), TRANSPLACENTAL
     Route: 064
     Dates: end: 20090515
  4. PROGRAF [Suspect]
     Indication: FOETAL EXPOSURE DURING PREGNANCY
     Dosage: TREATMENT STARTED BEFORE PREGNANCY (2.5 G, 1 IN 1 D) TRANSPLACENTAL
     Route: 064
     Dates: start: 20090515
  5. DELURSAN (URSODEOXYCHOLIC ACID) (200 MG) [Suspect]
     Indication: FOETAL EXPOSURE DURING PREGNANCY
     Dosage: 800 MG (200 MG, 4 IN 1 D), TRANSPLACENTAL
     Route: 064
     Dates: end: 20090915
  6. PENTASA [Concomitant]
  7. CELLCEPT [Suspect]
     Indication: FOETAL EXPOSURE DURING PREGNANCY
     Dosage: 500 M (250 MG, 2 IN 1 D), TRANSPLACENTAL

REACTIONS (5)
  - MATERNAL DRUGS AFFECTING FOETUS [None]
  - CAESAREAN SECTION [None]
  - DYSMORPHISM [None]
  - HAEMATOMA [None]
  - NEUTROPENIA NEONATAL [None]
